FAERS Safety Report 20838500 (Version 1)
Quarter: 2022Q2

REPORT INFORMATION
  Report Type: Other
  Country: EG (occurrence: EG)
  Receive Date: 20220517
  Receipt Date: 20220517
  Transmission Date: 20220720
  Serious: Yes (Other)
  Sender: FDA-Public Use
  Company Number: EG-002147023-NVSC2022EG108738

PATIENT
  Age: 48 Year
  Sex: Female

DRUGS (8)
  1. XOLAIR [Suspect]
     Active Substance: OMALIZUMAB
     Indication: Urticaria
     Dosage: 150 MG, QMO
     Route: 065
     Dates: start: 20220329
  2. XOLAIR [Suspect]
     Active Substance: OMALIZUMAB
     Indication: Asthma
  3. ZYRTEC (EGYPT) [Concomitant]
     Indication: Hypersensitivity
     Dosage: 1 DOSAGE FORM, QD
     Route: 048
  4. ATORVASTATIN CALCIUM [Concomitant]
     Active Substance: ATORVASTATIN CALCIUM
     Indication: Product used for unknown indication
     Dosage: 1 DOSAGE FORM, QD
     Route: 048
     Dates: start: 2020
  5. HALOPERIDOL [Concomitant]
     Active Substance: HALOPERIDOL
     Indication: Influenza
     Dosage: 1 DOSAGE FORM (ONE OR TWO TABLET DAILY WHEN NEEDED)
     Route: 048
     Dates: start: 202109
  6. HALOPERIDOL [Concomitant]
     Active Substance: HALOPERIDOL
     Indication: Pyrexia
  7. PARAMOL (EGYPT) [Concomitant]
     Indication: Influenza
     Dosage: UNK ONE OR TWO TABLET DAILY WHEN NEEDED
     Route: 048
     Dates: start: 202109
  8. PARAMOL (EGYPT) [Concomitant]
     Indication: Pyrexia

REACTIONS (4)
  - Pyrexia [Recovered/Resolved]
  - Hypotension [Recovered/Resolved]
  - Influenza like illness [Recovered/Resolved]
  - Inappropriate schedule of product administration [Unknown]

NARRATIVE: CASE EVENT DATE: 20220329
